APPROVED DRUG PRODUCT: LORAZEPAM
Active Ingredient: LORAZEPAM
Strength: 0.5MG
Dosage Form/Route: TABLET;ORAL
Application: A078826 | Product #001
Applicant: AMNEAL PHARMACEUTICALS
Approved: Jun 23, 2010 | RLD: No | RS: No | Type: DISCN